FAERS Safety Report 8694425 (Version 1)
Quarter: 2020Q3

REPORT INFORMATION
  Report Type: Report from Study
  Country: BR (occurrence: BR)
  Receive Date: 20120731
  Receipt Date: 20120731
  Transmission Date: 20201105
  Serious: Yes (Hospitalization, Other)
  Sender: FDA-Public Use
  Company Number: BR-ROCHE-1093736

PATIENT
  Age: 66 Year
  Sex: Female
  Weight: 53 kg

DRUGS (5)
  1. IBANDRONIC ACID. [Suspect]
     Active Substance: IBANDRONIC ACID
     Indication: OSTEOPOROSIS
     Dosage: LAST DOSE TAKEN 23/APR/2008
  2. METFORMIN HYDROCHLORIDE. [Concomitant]
     Active Substance: METFORMIN HYDROCHLORIDE
  3. CRESTOR [Concomitant]
     Active Substance: ROSUVASTATIN CALCIUM
  4. CALCITRIOL. [Concomitant]
     Active Substance: CALCITRIOL
  5. ASCORBIC ACID\LUTEIN\VITAMIN E\ZINC OXIDE [Concomitant]

REACTIONS (5)
  - Fall [Recovered/Resolved]
  - Nervousness [Unknown]
  - Dizziness [Unknown]
  - Syncope [Recovered/Resolved]
  - Myocardial infarction [Unknown]

NARRATIVE: CASE EVENT DATE: 20080408
